FAERS Safety Report 18594466 (Version 1)
Quarter: 2020Q4

REPORT INFORMATION
  Report Type: Spontaneous
  Country: US (occurrence: US)
  Receive Date: 20201208
  Receipt Date: 20201208
  Transmission Date: 20210114
  Serious: No
  Sender: FDA-Public Use
  Company Number: None

PATIENT
  Age: 12 Week
  Sex: Female

DRUGS (1)
  1. PEMAZYRE [Suspect]
     Active Substance: PEMIGATINIB
     Indication: CHOLANGIOCARCINOMA
     Route: 048

REACTIONS (5)
  - Subretinal fluid [None]
  - Fatigue [None]
  - Blood phosphorus increased [None]
  - Therapy interrupted [None]
  - Vision blurred [None]

NARRATIVE: CASE EVENT DATE: 20201207
